FAERS Safety Report 7450830-7 (Version None)
Quarter: 2011Q2

REPORT INFORMATION
  Report Type: 
  Country: None (occurrence: None)
  Receive Date: 20110422
  Receipt Date: 20110418
  Transmission Date: 20111010
  Serious: Yes (Life-Threatening)
  Sender: FDA-Public Use
  Company Number: 2011SP017388

PATIENT
  Age: 68 Year
  Sex: Female

DRUGS (15)
  1. BETAMETHASONE [Suspect]
     Indication: PRODUCT USED FOR UNKNOWN INDICATION
     Dosage: 4 MG, ONCE; IV
     Route: 042
     Dates: start: 20101230, end: 20101230
  2. SUFENTANIL CITRATE [Suspect]
     Indication: PRODUCT USED FOR UNKNOWN INDICATION
     Dosage: 10 MCG, IV
     Route: 042
     Dates: start: 20101230
  3. BISOPROLOL FUMARATE [Concomitant]
  4. SUCCINYLCHOLINE CHLORIDE [Suspect]
     Indication: PRODUCT USED FOR UNKNOWN INDICATION
     Dosage: 10 MG, ONCE; IV
     Route: 042
     Dates: start: 20101230, end: 20101230
  5. ASPIRIN [Concomitant]
  6. CANDESARTAN CILEXETIL [Concomitant]
  7. PROPOFOL [Suspect]
     Indication: PRODUCT USED FOR UNKNOWN INDICATION
     Dosage: 200 MG, ONCE; IV
     Route: 042
     Dates: start: 20101230
  8. BLUE PATENTE V GUERBET (PATENT BLUE V CI 42051 E131) [Suspect]
     Indication: PRODUCT USED FOR UNKNOWN INDICATION
     Dosage: 1 DF;
     Dates: start: 20101230, end: 20101230
  9. LIDOCAINE [Suspect]
     Indication: PRODUCT USED FOR UNKNOWN INDICATION
     Dosage: 40 MG, ONCE, IV
     Route: 042
     Dates: start: 20101230, end: 20101230
  10. KETAMINE HYDROCHLORIDE [Suspect]
     Indication: PRODUCT USED FOR UNKNOWN INDICATION
     Dosage: 15 MG, ONCE; IV
     Route: 042
     Dates: start: 20101230, end: 20101230
  11. PRAVASTATIN [Concomitant]
  12. FUROSEMIDE [Concomitant]
  13. DIFFU-K [Concomitant]
  14. FLECAINE [Concomitant]
  15. NEXIUM [Concomitant]

REACTIONS (6)
  - HYPOCAPNIA [None]
  - ELECTROCARDIOGRAM ST SEGMENT ELEVATION [None]
  - VENTRICULAR FIBRILLATION [None]
  - PULSELESS ELECTRICAL ACTIVITY [None]
  - ATRIAL FIBRILLATION [None]
  - ANAPHYLACTIC SHOCK [None]
